FAERS Safety Report 8692597 (Version 4)
Quarter: 2014Q3

REPORT INFORMATION
  Report Type: Spontaneous
  Country: US (occurrence: US)
  Receive Date: 20120730
  Receipt Date: 20140815
  Transmission Date: 20150326
  Serious: Yes (Hospitalization, Other)
  Sender: FDA-Public Use
  Company Number: US-009507513-1207USA008775

PATIENT
  Sex: Female
  Weight: 63.49 kg

DRUGS (1)
  1. NUVARING [Suspect]
     Active Substance: ETHINYL ESTRADIOL\ETONOGESTREL
     Indication: CONTRACEPTION
     Dosage: UNK
     Route: 067
     Dates: end: 20110503

REACTIONS (21)
  - Pulmonary embolism [Unknown]
  - Treatment noncompliance [Unknown]
  - Migraine [Unknown]
  - Drug ineffective [Unknown]
  - Menorrhagia [Unknown]
  - Axillary pain [Unknown]
  - Uterine leiomyoma [Unknown]
  - Fibroma [Unknown]
  - Allergic sinusitis [Unknown]
  - Female sterilisation [Unknown]
  - Pain [Unknown]
  - Pulmonary infarction [Unknown]
  - Fungal infection [Unknown]
  - Pain [Unknown]
  - Metrorrhagia [Unknown]
  - Stress [Unknown]
  - Anaemia [Unknown]
  - Anaemia [Unknown]
  - Deep vein thrombosis [Unknown]
  - Ovarian cyst [Unknown]
  - Vaginal infection [Unknown]

NARRATIVE: CASE EVENT DATE: 200905
